FAERS Safety Report 19597277 (Version 13)
Quarter: 2023Q2

REPORT INFORMATION
  Report Type: Spontaneous
  Country: CA (occurrence: CA)
  Receive Date: 20210723
  Receipt Date: 20230508
  Transmission Date: 20230721
  Serious: Yes (Other)
  Sender: FDA-Public Use
  Company Number: CA-CELLTRION INC.-2021CA007708

PATIENT

DRUGS (15)
  1. INFLECTRA [Suspect]
     Active Substance: INFLIXIMAB-DYYB
     Indication: Takayasu^s arteritis
     Dosage: 200 MG, 0, 2, 6 THEN EVERY 8 WEEKS
     Route: 042
     Dates: start: 20171120, end: 20180813
  2. INFLECTRA [Suspect]
     Active Substance: INFLIXIMAB-DYYB
     Dosage: 385 MG, EVERY 6 WEEKS
     Route: 042
     Dates: start: 20180924
  3. INFLECTRA [Suspect]
     Active Substance: INFLIXIMAB-DYYB
     Dosage: 385 MG, EVERY 6 WEEKS
     Route: 042
     Dates: start: 20210521
  4. INFLECTRA [Suspect]
     Active Substance: INFLIXIMAB-DYYB
     Dosage: 385 MG, EVERY 6 WEEKS
     Route: 042
     Dates: start: 20210712
  5. INFLECTRA [Suspect]
     Active Substance: INFLIXIMAB-DYYB
     Dosage: 385 MG EVERY 6 WEEKS
     Route: 042
     Dates: start: 20210909
  6. INFLECTRA [Suspect]
     Active Substance: INFLIXIMAB-DYYB
     Dosage: 385 MG EVERY 6 WEEKS
     Route: 042
     Dates: start: 20220113
  7. INFLECTRA [Suspect]
     Active Substance: INFLIXIMAB-DYYB
     Dosage: 385 MG EVERY 6 WEEKS
     Route: 042
     Dates: start: 20220406
  8. INFLECTRA [Suspect]
     Active Substance: INFLIXIMAB-DYYB
     Dosage: 385 MG EVERY 6 WEEKS
     Route: 042
     Dates: start: 20220708
  9. INFLECTRA [Suspect]
     Active Substance: INFLIXIMAB-DYYB
     Dosage: 385 MG EVERY 6 WEEKS
     Route: 042
     Dates: start: 20220824
  10. NIFEDIPINE [Concomitant]
     Active Substance: NIFEDIPINE
     Dosage: 120 MG, 1X/DAY
     Route: 048
     Dates: start: 2016
  11. ASPIRIN [Concomitant]
     Active Substance: ASPIRIN
     Indication: Takayasu^s arteritis
     Dosage: 81 MG, 1X/DAY
     Route: 048
     Dates: start: 2009
  12. INDAPAMIDE [Concomitant]
     Active Substance: INDAPAMIDE
     Dosage: 2 MG, 1X/DAY DOSE - 2.5 MG, CAPTURED 2 MG DUE TO DATABASE RESTRICTIONS
     Route: 048
     Dates: start: 201707
  13. LABETALOL [Concomitant]
     Active Substance: LABETALOL\LABETALOL HYDROCHLORIDE
     Dosage: 20 MG, 2X/DAY
     Route: 048
     Dates: start: 2016
  14. METHOTREXATE [Concomitant]
     Active Substance: METHOTREXATE
     Dosage: 1 DF, WEEKLY
     Route: 058
     Dates: start: 2009
  15. PANTOPRAZOLE [Concomitant]
     Active Substance: PANTOPRAZOLE
     Dosage: 40 MG, 2X/DAY
     Route: 048
     Dates: start: 201706

REACTIONS (14)
  - Hypertension [Not Recovered/Not Resolved]
  - Off label use [Unknown]
  - Illness [Unknown]
  - Blood pressure fluctuation [Unknown]
  - Nasopharyngitis [Not Recovered/Not Resolved]
  - Nasal congestion [Not Recovered/Not Resolved]
  - Cough [Not Recovered/Not Resolved]
  - Oropharyngeal pain [Not Recovered/Not Resolved]
  - Blood pressure abnormal [Unknown]
  - Heart rate increased [Not Recovered/Not Resolved]
  - Oropharyngeal pain [Unknown]
  - Headache [Unknown]
  - Chest discomfort [Unknown]
  - Malaise [Not Recovered/Not Resolved]

NARRATIVE: CASE EVENT DATE: 20171120
